FAERS Safety Report 5754446-X (Version None)
Quarter: 2008Q2

REPORT INFORMATION
  Report Type: 
  Country: None (occurrence: None)
  Receive Date: 20080530
  Receipt Date: 20080529
  Transmission Date: 20081010
  Serious: Yes (Death, Other)
  Sender: FDA-Public Use
  Company Number: JP-BOEHRINGER INGELHEIM GMBH, GERMANY-2008-BP-06895NB

PATIENT
  Sex: Female

DRUGS (4)
  1. MICARDIS [Suspect]
     Indication: HYPERTENSION
     Route: 048
     Dates: start: 20070228, end: 20080113
  2. AMLODIN [Concomitant]
     Indication: HYPERTENSION
     Route: 048
  3. NATRIX [Concomitant]
     Indication: HYPERTENSION
     Route: 048
  4. MELBURAL (ETHYL ICOSAPENTATE) [Concomitant]
     Route: 048

REACTIONS (1)
  - DEATH [None]
